FAERS Safety Report 21475628 (Version 1)
Quarter: 2022Q4

REPORT INFORMATION
  Report Type: Spontaneous
  Country: US (occurrence: US)
  Receive Date: 20221019
  Receipt Date: 20221019
  Transmission Date: 20230112
  Serious: No
  Sender: FDA-Public Use
  Company Number: US-CELLTRION INC.-2021US011761

PATIENT

DRUGS (1)
  1. INFLECTRA [Suspect]
     Active Substance: INFLIXIMAB-DYYB
     Indication: Colitis ulcerative
     Dosage: IV INFUSION, UNKNOWN DOSAGE, EVERY 6 WEEKS
     Route: 042
     Dates: start: 20210716

REACTIONS (20)
  - Burning sensation [Unknown]
  - Decreased appetite [Not Recovered/Not Resolved]
  - Sensitive skin [Recovered/Resolved]
  - Condition aggravated [Unknown]
  - Feeling abnormal [Recovered/Resolved]
  - Illness [Unknown]
  - Abdominal pain upper [Not Recovered/Not Resolved]
  - Diarrhoea [Not Recovered/Not Resolved]
  - Weight decreased [Not Recovered/Not Resolved]
  - Joint swelling [Recovered/Resolved]
  - Pain [Unknown]
  - Pruritus [Recovered/Resolved]
  - Arthralgia [Recovered/Resolved]
  - Infusion site pain [Recovered/Resolved]
  - Pain in extremity [Recovered/Resolved]
  - Asthenia [Not Recovered/Not Resolved]
  - Infusion site discomfort [Recovered/Resolved]
  - Infusion related reaction [Unknown]
  - Myalgia [Recovered/Resolved]
  - Off label use [Unknown]

NARRATIVE: CASE EVENT DATE: 20210716
